FAERS Safety Report 10061267 (Version 2)
Quarter: 2014Q2

REPORT INFORMATION
  Report Type: Report from Study
  Country: US (occurrence: US)
  Receive Date: 20140407
  Receipt Date: 20140409
  Transmission Date: 20141212
  Serious: Yes (Hospitalization, Other)
  Sender: FDA-Public Use
  Company Number: US-ROCHE-1376107

PATIENT
  Age: 20 Year
  Sex: Female
  Weight: 105.33 kg

DRUGS (8)
  1. CELLCEPT [Suspect]
     Indication: SYSTEMIC SCLEROSIS
     Dosage: ^1500 BID^
     Route: 048
  2. CELLCEPT [Suspect]
     Indication: SYSTEMIC LUPUS ERYTHEMATOSUS
     Route: 048
     Dates: start: 2005, end: 201312
  3. CELLCEPT [Suspect]
     Indication: LUPUS NEPHRITIS
  4. ADVAIR [Concomitant]
     Indication: ASTHMA
  5. CETIRIZINE [Concomitant]
     Indication: HYPERSENSITIVITY
     Route: 048
  6. IVIG [Concomitant]
     Indication: IMMUNODEFICIENCY COMMON VARIABLE
     Route: 042
  7. FLUOXETINE [Concomitant]
     Indication: DEPRESSION
     Route: 048
  8. HYDROXYCHLOROQUINE [Concomitant]
     Indication: SYSTEMIC LUPUS ERYTHEMATOSUS
     Route: 048

REACTIONS (4)
  - Fatigue [Unknown]
  - Myositis [Unknown]
  - Arthralgia [Unknown]
  - Systemic lupus erythematosus [Unknown]
